FAERS Safety Report 13659366 (Version 1)
Quarter: 2017Q2

REPORT INFORMATION
  Report Type: Report from Study
  Country: IT (occurrence: IT)
  Receive Date: 20170616
  Receipt Date: 20170616
  Transmission Date: 20170830
  Serious: Yes (Death)
  Sender: FDA-Public Use
  Company Number: IT-BAYER-2017-030779

PATIENT
  Age: 82 Year
  Sex: Male
  Weight: 80 kg

DRUGS (14)
  1. RIVAROXABAN [Suspect]
     Active Substance: RIVAROXABAN
     Indication: AORTIC VALVE REPLACEMENT
  2. ACETYLSALICYLIC ACID({=100 MG) [Suspect]
     Active Substance: ASPIRIN
     Indication: AORTIC VALVE REPLACEMENT
  3. PANTOPRAZOLE [Concomitant]
     Active Substance: PANTOPRAZOLE
     Indication: PROPHYLAXIS
     Dosage: 20 MG, QD
     Route: 048
  4. KANRENOL [Concomitant]
     Active Substance: CANRENOATE POTASSIUM
     Dosage: 50 MG THREE TIMES A WEEK, EVERY OTHER DAY
     Route: 048
  5. ZOFENOPRIL [Concomitant]
     Active Substance: ZOFENOPRIL
     Dosage: 30 MG, QD
     Route: 048
  6. IVABRADINE [Concomitant]
     Active Substance: IVABRADINE
     Dosage: 2.5 MG, BID
     Route: 048
  7. EZETIMIBE. [Concomitant]
     Active Substance: EZETIMIBE
     Dosage: 10 MG, QD
     Route: 048
  8. ACETYLSALICYLIC ACID({=100 MG) [Suspect]
     Active Substance: ASPIRIN
     Indication: THROMBOSIS PROPHYLAXIS
     Dosage: 100 MG, QD
     Route: 048
     Dates: start: 20161112, end: 20170213
  9. CARDIOASPIRIN 100 MG [Concomitant]
     Active Substance: ASPIRIN
     Indication: PROPHYLAXIS
     Dosage: 100 MG, QD
     Route: 048
  10. FUROSEMIDE [FUROSEMIDE] [Concomitant]
     Active Substance: FUROSEMIDE
     Dosage: 25 MG  THREE TIMES A WEEK, EVERY OTHER DAY
     Route: 048
  11. GLICLAZIDE [Concomitant]
     Active Substance: GLICLAZIDE
     Dosage: 30 MG, QD
     Route: 048
  12. RIVAROXABAN [Suspect]
     Active Substance: RIVAROXABAN
     Indication: THROMBOSIS PROPHYLAXIS
     Dosage: 10 MG, QD
     Route: 048
     Dates: start: 20161111, end: 20170213
  13. BISOPROLOL [Concomitant]
     Active Substance: BISOPROLOL
     Dosage: 2.5 MG, QD
     Route: 048
  14. ACARBOSE. [Concomitant]
     Active Substance: ACARBOSE
     Dosage: 50 MG, QD
     Route: 048

REACTIONS (1)
  - Cerebral haemorrhage [Fatal]

NARRATIVE: CASE EVENT DATE: 20170213
